FAERS Safety Report 17318057 (Version 1)
Quarter: 2020Q1

REPORT INFORMATION
  Report Type: Spontaneous
  Country: US (occurrence: US)
  Receive Date: 20200124
  Receipt Date: 20200124
  Transmission Date: 20200409
  Serious: Yes (Other)
  Sender: FDA-Public Use
  Company Number: US-TEVA-2020-US-1173784

PATIENT
  Sex: Female

DRUGS (1)
  1. COPAXONE [Suspect]
     Active Substance: GLATIRAMER ACETATE
     Indication: MULTIPLE SCLEROSIS
     Route: 065

REACTIONS (6)
  - Rash pruritic [Unknown]
  - Injection site erythema [Unknown]
  - Multiple sclerosis [Unknown]
  - Erythema [Unknown]
  - Injection site pain [Unknown]
  - Oral disorder [Unknown]

NARRATIVE: CASE EVENT DATE: 201912
